FAERS Safety Report 19936790 (Version 1)
Quarter: 2021Q4

REPORT INFORMATION
  Report Type: Spontaneous
  Country: PL (occurrence: PL)
  Receive Date: 20211009
  Receipt Date: 20211009
  Transmission Date: 20220303
  Serious: Yes (Other)
  Sender: FDA-Public Use
  Company Number: PL-ROCHE-2930205

PATIENT
  Age: 62 Year
  Sex: Male

DRUGS (2)
  1. ESBRIET [Suspect]
     Active Substance: PIRFENIDONE
     Indication: Idiopathic pulmonary fibrosis
     Route: 065
     Dates: start: 201707
  2. NINTEDANIB [Concomitant]
     Active Substance: NINTEDANIB

REACTIONS (1)
  - Cancer surgery [Unknown]
